FAERS Safety Report 20788293 (Version 1)
Quarter: 2022Q2

REPORT INFORMATION
  Report Type: Spontaneous
  Country: US (occurrence: US)
  Receive Date: 20220505
  Receipt Date: 20220505
  Transmission Date: 20220720
  Serious: No
  Sender: FDA-Public Use
  Company Number: US-SA-SAC20220502000229

PATIENT
  Age: 31 Year
  Sex: Female

DRUGS (1)
  1. DUPIXENT [Suspect]
     Active Substance: DUPILUMAB
     Indication: Psoriasis
     Dosage: 300 MG, QOW
     Route: 058
     Dates: start: 20211019

REACTIONS (4)
  - Pruritus [Unknown]
  - Burning sensation [Unknown]
  - Pain [Unknown]
  - Product use in unapproved indication [Unknown]

NARRATIVE: CASE EVENT DATE: 20211019
